FAERS Safety Report 25016968 (Version 1)
Quarter: 2025Q1

REPORT INFORMATION
  Report Type: Spontaneous
  Country: CN (occurrence: CN)
  Receive Date: 20250227
  Receipt Date: 20250227
  Transmission Date: 20250408
  Serious: Yes (Hospitalization)
  Sender: NOVARTIS
  Company Number: CN-002147023-NVSC2025CN031406

PATIENT
  Age: 53 Year
  Sex: Male
  Weight: 63 kg

DRUGS (8)
  1. ENTRESTO [Suspect]
     Active Substance: SACUBITRIL\VALSARTAN
     Indication: Acute myocardial infarction
     Dosage: 200 MG, QD
     Route: 048
     Dates: start: 20211014, end: 20250120
  2. ENTRESTO [Suspect]
     Active Substance: SACUBITRIL\VALSARTAN
     Indication: Left atrial enlargement
  3. ENTRESTO [Suspect]
     Active Substance: SACUBITRIL\VALSARTAN
     Indication: Arteriosclerosis coronary artery
  4. ENTRESTO [Suspect]
     Active Substance: SACUBITRIL\VALSARTAN
     Indication: Hypertension
  5. ENTRESTO [Suspect]
     Active Substance: SACUBITRIL\VALSARTAN
     Indication: Coronary artery stenosis
  6. ENTRESTO [Suspect]
     Active Substance: SACUBITRIL\VALSARTAN
     Indication: Hyperuricaemia
  7. ENTRESTO [Suspect]
     Active Substance: SACUBITRIL\VALSARTAN
     Indication: Hypertriglyceridaemia
  8. ENTRESTO [Suspect]
     Active Substance: SACUBITRIL\VALSARTAN
     Indication: Stent placement

REACTIONS (8)
  - Liver injury [Unknown]
  - Chest pain [Unknown]
  - Cardiac failure [Unknown]
  - Glutamate dehydrogenase increased [Unknown]
  - Alanine aminotransferase increased [Unknown]
  - Blood bilirubin unconjugated increased [Unknown]
  - AST/ALT ratio abnormal [Unknown]
  - Off label use [Unknown]

NARRATIVE: CASE EVENT DATE: 20250116
